FAERS Safety Report 14787334 (Version 1)
Quarter: 2018Q2

REPORT INFORMATION
  Report Type: Spontaneous
  Country: OM (occurrence: OM)
  Receive Date: 20180421
  Receipt Date: 20180421
  Transmission Date: 20180711
  Serious: Yes (Other)
  Sender: FDA-Public Use
  Company Number: OM-SUN PHARMACEUTICAL INDUSTRIES LTD-2018RR-170453

PATIENT
  Age: 27 Year
  Sex: Male

DRUGS (7)
  1. OXALIPLATIN. [Suspect]
     Active Substance: OXALIPLATIN
     Indication: GERM CELL CANCER
     Dosage: 3RD LINE OF CHEMOTHERAPY
     Route: 065
     Dates: start: 2010
  2. BLEOMYCIN [Suspect]
     Active Substance: BLEOMYCIN SULFATE
     Indication: GERM CELL CANCER
     Dosage: 4 CYCLES
     Route: 065
  3. ETOPOSIDE. [Suspect]
     Active Substance: ETOPOSIDE
     Indication: GERM CELL CANCER
     Dosage: 4 CYCLES
     Route: 065
  4. CISPLATIN. [Suspect]
     Active Substance: CISPLATIN
     Indication: GERM CELL CANCER
     Dosage: 4 CYCLES
     Route: 065
  5. GEMCITABINE [Suspect]
     Active Substance: GEMCITABINE\GEMCITABINE HYDROCHLORIDE
     Indication: GERM CELL CANCER
     Dosage: 3RD LINE OF CHEMOTHERAPY
     Route: 065
     Dates: start: 2010
  6. PACLITAXEL. [Suspect]
     Active Substance: PACLITAXEL
     Indication: GERM CELL CANCER
     Dosage: 2 CYCLES OF 3 WEEKLY
     Route: 065
  7. CARBOPLATIN. [Suspect]
     Active Substance: CARBOPLATIN
     Indication: GERM CELL CANCER
     Dosage: 2 CYCLES OF 3 WEEKLY
     Route: 065

REACTIONS (2)
  - Osteonecrosis [Recovered/Resolved]
  - Drug effect incomplete [Recovered/Resolved]
